FAERS Safety Report 18777431 (Version 1)
Quarter: 2021Q1

REPORT INFORMATION
  Report Type: Other
  Country: US (occurrence: US)
  Receive Date: 20210122
  Receipt Date: 20210122
  Transmission Date: 20210419
  Serious: Yes (Hospitalization, Other)
  Sender: FDA-Public Use
  Company Number: US-C B FLEET CO INC-202101-US-000073

PATIENT
  Age: 36 Year
  Sex: Male

DRUGS (1)
  1. ASPIRIN. [Suspect]
     Active Substance: ASPIRIN
     Indication: HEADACHE
     Dosage: 20 TABS
     Route: 048

REACTIONS (5)
  - Hyperthermia [Recovered/Resolved]
  - Rhabdomyolysis [Recovered/Resolved]
  - Hypotension [Recovered/Resolved]
  - Intentional overdose [None]
  - Toxicity to various agents [Recovered/Resolved]
